FAERS Safety Report 21840356 (Version 1)
Quarter: 2023Q1

REPORT INFORMATION
  Report Type: Spontaneous
  Country: FR (occurrence: None)
  Receive Date: 20230110
  Receipt Date: 20230110
  Transmission Date: 20230417
  Serious: Yes (Hospitalization)
  Sender: FDA-Public Use
  Company Number: FR-ROCHE-3258411

PATIENT
  Age: 74 Year
  Sex: Male
  Weight: 64 kg

DRUGS (2)
  1. OPDIVO [Suspect]
     Active Substance: NIVOLUMAB
     Indication: Disease recurrence
     Route: 042
     Dates: start: 202109, end: 202111
  2. XELODA [Suspect]
     Active Substance: CAPECITABINE
     Indication: Disease recurrence
     Route: 048
     Dates: start: 20221004, end: 20221110

REACTIONS (2)
  - Toxic skin eruption [Recovering/Resolving]
  - Lichenoid keratosis [Recovering/Resolving]

NARRATIVE: CASE EVENT DATE: 20220912
